FAERS Safety Report 12191732 (Version 1)
Quarter: 2016Q1

REPORT INFORMATION
  Report Type: Spontaneous
  Country: US (occurrence: US)
  Receive Date: 20160318
  Receipt Date: 20160318
  Transmission Date: 20160526
  Serious: No
  Sender: FDA-Public Use
  Company Number: US-PFIZER INC-2016106867

PATIENT
  Age: 35 Year
  Sex: Female
  Weight: 58 kg

DRUGS (1)
  1. CHANTIX [Suspect]
     Active Substance: VARENICLINE TARTRATE
     Indication: SMOKING CESSATION THERAPY
     Dosage: UNK UNK, 2X/DAY
     Route: 048
     Dates: start: 20150225, end: 201503

REACTIONS (5)
  - Anger [Recovered/Resolved]
  - Irritability [Recovered/Resolved]
  - Foot fracture [Unknown]
  - Agitation [Unknown]
  - Tobacco withdrawal symptoms [Unknown]

NARRATIVE: CASE EVENT DATE: 2015
